FAERS Safety Report 20906227 (Version 1)
Quarter: 2022Q2

REPORT INFORMATION
  Report Type: Spontaneous
  Country: US (occurrence: US)
  Receive Date: 20220602
  Receipt Date: 20220602
  Transmission Date: 20220721
  Serious: No
  Sender: FDA-Public Use
  Company Number: US-AMGEN-USASP2022091541

PATIENT
  Age: 68 Year
  Sex: Female

DRUGS (3)
  1. CINACALCET HYDROCHLORIDE [Suspect]
     Active Substance: CINACALCET HYDROCHLORIDE
     Indication: Cutaneous calcification
     Dosage: UNK
     Route: 065
  2. ALENDRONATE [Concomitant]
     Active Substance: ALENDRONATE SODIUM
     Indication: Osteoporosis
     Dosage: UNK UNK, QWK
     Route: 048
  3. THIOSULFATE [Concomitant]
     Indication: Cutaneous calcification
     Route: 061

REACTIONS (3)
  - Drug intolerance [Unknown]
  - Hypocalcaemia [Unknown]
  - Off label use [Unknown]
